FAERS Safety Report 15348623 (Version 6)
Quarter: 2020Q1

REPORT INFORMATION
  Report Type: Spontaneous
  Country: LV (occurrence: LV)
  Receive Date: 20180904
  Receipt Date: 20200323
  Transmission Date: 20200409
  Serious: Yes (Other)
  Sender: FDA-Public Use
  Company Number: LV-PFIZER INC-2018353262

PATIENT
  Age: 64 Year
  Sex: Male

DRUGS (8)
  1. TICAGRELOR. [Suspect]
     Active Substance: TICAGRELOR
     Dosage: UNK
     Route: 065
  2. NEBIVOLOL. [Suspect]
     Active Substance: NEBIVOLOL
     Dosage: 2.50 MG, DAILY
     Route: 065
  3. SPIRONOLACTONE. [Suspect]
     Active Substance: SPIRONOLACTONE
     Dosage: 25 MG, UNK
     Route: 065
     Dates: start: 201411
  4. ASPIRIN [ACETYLSALICYLIC ACID] [Suspect]
     Active Substance: ASPIRIN
     Dosage: 100 MG, UNK
     Route: 065
  5. ATORVASTATIN CALCIUM. [Suspect]
     Active Substance: ATORVASTATIN CALCIUM
     Dosage: 40 MG, UNK
     Route: 065
  6. PANTOPRAZOLE [Suspect]
     Active Substance: PANTOPRAZOLE
     Dosage: UNK
     Route: 065
  7. SPIRONOLACTONE. [Suspect]
     Active Substance: SPIRONOLACTONE
     Dosage: 50 MG, UNK
  8. IVABRADINE [Concomitant]
     Active Substance: IVABRADINE
     Dosage: 10 MG, DAILY

REACTIONS (3)
  - Brain natriuretic peptide increased [Unknown]
  - Dyspnoea [Recovering/Resolving]
  - Blood pressure decreased [Unknown]
